FAERS Safety Report 20136684 (Version 1)
Quarter: 2021Q4

REPORT INFORMATION
  Report Type: Spontaneous
  Country: US (occurrence: None)
  Receive Date: 20211201
  Receipt Date: 20211201
  Transmission Date: 20220303
  Serious: Yes (Hospitalization)
  Sender: FDA-Public Use
  Company Number: None

PATIENT
  Sex: Female

DRUGS (12)
  1. ORENCIA [Suspect]
     Active Substance: ABATACEPT
     Indication: Rheumatoid arthritis
     Dosage: FREQUENCY : WEEKLY;?
     Route: 058
     Dates: start: 20180413
  2. CLOPIDOGREL [Concomitant]
     Active Substance: CLOPIDOGREL BISULFATE
  3. RANOLAZINE [Concomitant]
     Active Substance: RANOLAZINE
  4. CARVEDILOL [Concomitant]
     Active Substance: CARVEDILOL
  5. LORATADINE [Concomitant]
     Active Substance: LORATADINE
  6. FLUTICASONE [Concomitant]
     Active Substance: FLUTICASONE
  7. ISOSORBIDE MONONITRATE [Concomitant]
     Active Substance: ISOSORBIDE MONONITRATE
  8. FUROSEMIDE [Concomitant]
     Active Substance: FUROSEMIDE
  9. LEFLUNOMIDE [Concomitant]
     Active Substance: LEFLUNOMIDE
  10. ESCITALOPRAM [Concomitant]
     Active Substance: ESCITALOPRAM OXALATE
  11. PRAVASTATIN [Concomitant]
     Active Substance: PRAVASTATIN
  12. PREGABALIN [Concomitant]
     Active Substance: PREGABALIN

REACTIONS (4)
  - Infection [None]
  - Pain [None]
  - Condition aggravated [None]
  - Therapy interrupted [None]
